FAERS Safety Report 11659707 (Version 1)
Quarter: 2015Q4

REPORT INFORMATION
  Report Type: Spontaneous
  Country: US (occurrence: None)
  Receive Date: 20151023
  Receipt Date: 20151023
  Transmission Date: 20160304
  Serious: Yes (Disabling)
  Sender: FDA-Public Use
  Company Number: None

PATIENT
  Age: 77 Year
  Sex: Female
  Weight: 63.5 kg

DRUGS (1)
  1. OXYGEN. [Suspect]
     Active Substance: OXYGEN

REACTIONS (2)
  - Device issue [None]
  - Incorrect dose administered by device [None]

NARRATIVE: CASE EVENT DATE: 20151016
